FAERS Safety Report 7002093-4 (Version None)
Quarter: 2010Q3

REPORT INFORMATION
  Report Type: 
  Country: None (occurrence: None)
  Receive Date: 20100920
  Receipt Date: 20100511
  Transmission Date: 20110219
  Serious: Yes (Other)
  Sender: FDA-Public Use
  Company Number: US-ASTRAZENECA-2010SE03957

PATIENT
  Age: 18936 Day
  Sex: Female
  Weight: 80.7 kg

DRUGS (7)
  1. SEROQUEL [Suspect]
     Indication: INSOMNIA
     Dosage: 50MG-400MG DAILY
     Route: 048
     Dates: start: 20070529
  2. TRAZODONE HCL [Concomitant]
     Indication: SLEEP DISORDER
     Dosage: 50MG-100MG AT NIGHT
     Dates: start: 20070603
  3. LUNESTA [Concomitant]
     Indication: SLEEP DISORDER
  4. LEXAPRO [Concomitant]
  5. EFFEXOR XR [Concomitant]
     Dosage: 75MG-150MG EVERY MORNING
     Dates: start: 20070529
  6. AMBIEN [Concomitant]
     Indication: SLEEP DISORDER
     Dates: start: 20070529
  7. LYRICA [Concomitant]
     Dosage: 100MG-200MG
     Dates: start: 20070604

REACTIONS (3)
  - DIABETES MELLITUS [None]
  - PANCREATITIS [None]
  - WEIGHT INCREASED [None]
